FAERS Safety Report 14553060 (Version 1)
Quarter: 2018Q1

REPORT INFORMATION
  Report Type: Spontaneous
  Country: US (occurrence: US)
  Receive Date: 20180208
  Receipt Date: 20180208
  Transmission Date: 20180509
  Serious: Yes (Death)
  Sender: FDA-Public Use
  Company Number: None

PATIENT
  Age: 56 Year
  Sex: Female

DRUGS (1)
  1. ZOFRAN [Suspect]
     Active Substance: ONDANSETRON HYDROCHLORIDE
     Indication: SURGERY
     Dates: start: 20171228

REACTIONS (3)
  - Transfusion reaction [None]
  - Laboratory test interference [None]
  - Cardio-respiratory arrest [None]

NARRATIVE: CASE EVENT DATE: 20171228
